FAERS Safety Report 7623483-2 (Version None)
Quarter: 2011Q3

REPORT INFORMATION
  Report Type: 
  Country: None (occurrence: None)
  Receive Date: 20110720
  Receipt Date: 20110713
  Transmission Date: 20111222
  Serious: Yes (Death, Other)
  Sender: FDA-Public Use
  Company Number: PHHY2011SE63051

PATIENT
  Age: 35 Year
  Sex: Male

DRUGS (3)
  1. ALIMEMAZINE [Suspect]
  2. HERBAL BLEND KRYPTON [Suspect]
  3. VENLAFAXINE [Suspect]

REACTIONS (3)
  - TOXICITY TO VARIOUS AGENTS [None]
  - PULMONARY OEDEMA [None]
  - PULMONARY CONGESTION [None]
